FAERS Safety Report 5299792-1 (Version None)
Quarter: 2007Q2

REPORT INFORMATION
  Report Type: 
  Country: None (occurrence: None)
  Receive Date: 20070417
  Receipt Date: 20070410
  Transmission Date: 20071010
  Serious: Yes (Hospitalization)
  Sender: FDA-Public Use
  Company Number: JP-PFIZER INC-2007029128

PATIENT
  Age: 57 Year
  Sex: Male

DRUGS (1)
  1. SOLANAX [Suspect]
     Indication: ENTERITIS
     Route: 048

REACTIONS (4)
  - BLOOD CREATINE PHOSPHOKINASE INCREASED [None]
  - HYPOGLYCAEMIA [None]
  - MYALGIA [None]
  - OVERDOSE [None]
